FAERS Safety Report 20632199 (Version 1)
Quarter: 2022Q1

REPORT INFORMATION
  Report Type: Report from Study
  Country: AU (occurrence: AU)
  Receive Date: 20220324
  Receipt Date: 20220324
  Transmission Date: 20220423
  Serious: Yes (Other)
  Sender: FDA-Public Use
  Company Number: AU-NOVARTISPH-NVSC2022AU062491

PATIENT
  Sex: Male

DRUGS (1)
  1. MAYZENT [Suspect]
     Active Substance: SIPONIMOD
     Indication: Secondary progressive multiple sclerosis
     Dosage: 2 MG, QD
     Route: 048
     Dates: start: 20211001

REACTIONS (7)
  - Hallucination [Unknown]
  - Renal disorder [Unknown]
  - Malaise [Unknown]
  - Pyrexia [Unknown]
  - Abnormal behaviour [Unknown]
  - Memory impairment [Unknown]
  - Speech disorder [Unknown]
